FAERS Safety Report 9559733 (Version 1)
Quarter: 2013Q3

REPORT INFORMATION
  Report Type: Spontaneous
  Country: US (occurrence: None)
  Receive Date: 20130906
  Receipt Date: 20130906
  Transmission Date: 20140515
  Serious: Yes (Hospitalization)
  Sender: FDA-Public Use
  Company Number: 163-POMAL-13051359

PATIENT
  Age: 45 Year
  Sex: Male

DRUGS (9)
  1. POMALYST (POMALIDOMIDE) (4 MILLIGRAM, CAPSULE) [Suspect]
     Indication: PLASMA CELL MYELOMA
     Dosage: 4 MILLIGRAM, 21 IN 28 D, PO
     Dates: start: 201304
  2. DEXAMETHASONE (DEXAMETHASONE) (UNKNOWN) [Concomitant]
  3. CARILZOMIB (CARFILZOMIB) (UNKNOWN) [Concomitant]
  4. COMPAZINE (PROCHLORPERAZINE EDISYLATE) (UNKNOWN) [Concomitant]
  5. WELLBUTRIN (BUPROPION HYDROCHLORIDE) (UNKNOWN) [Concomitant]
  6. OXYCODONE (OXYCODONE) (UNKNOWN) (OXYCODONE) [Concomitant]
  7. ACYCLOVIR (ACICLOVIR) (UNKNOWN) [Concomitant]
  8. LORAZEPAM (LORAZEPAM) (UNKNOWN) [Concomitant]
  9. SUCRALFATE (SUCRALFATE) (UNKNOWN) [Concomitant]

REACTIONS (3)
  - Haemoglobin decreased [None]
  - Pyrexia [None]
  - Full blood count decreased [None]
